FAERS Safety Report 13934630 (Version 2)
Quarter: 2017Q4

REPORT INFORMATION
  Report Type: Spontaneous
  Country: US (occurrence: US)
  Receive Date: 20170905
  Receipt Date: 20171110
  Transmission Date: 20180320
  Serious: Yes (Other)
  Sender: FDA-Public Use
  Company Number: US-009507513-1708USA012813

PATIENT
  Age: 32 Year
  Sex: Female
  Weight: 172 kg

DRUGS (3)
  1. NEXPLANON [Suspect]
     Active Substance: ETONOGESTREL
     Indication: CONTRACEPTION
     Dosage: 1 ROD/ 3 YEARS, LEFT ARM
     Route: 059
     Dates: start: 20170815
  2. PLAN B [Concomitant]
     Active Substance: LEVONORGESTREL
     Dosage: 1.5 MG, ONCE
     Route: 048
     Dates: start: 20170815, end: 20170815
  3. LABETALOL [Concomitant]
     Active Substance: LABETALOL\LABETALOL HYDROCHLORIDE
     Dosage: 300 MG, ONCE
     Route: 048

REACTIONS (2)
  - Abortion spontaneous [Unknown]
  - Exposure during pregnancy [Recovered/Resolved]

NARRATIVE: CASE EVENT DATE: 20170815
